FAERS Safety Report 8974939 (Version 2)
Quarter: 2013Q3

REPORT INFORMATION
  Report Type: Report from Study
  Country: AT (occurrence: AT)
  Receive Date: 20121220
  Receipt Date: 20130709
  Transmission Date: 20140515
  Serious: Yes (Hospitalization)
  Sender: FDA-Public Use
  Company Number: AT-CELGENEUS-009-C5013-12120855

PATIENT
  Age: 78 Year
  Sex: Female
  Weight: 62 kg

DRUGS (15)
  1. CC-5013 [Suspect]
     Indication: PLASMA CELL MYELOMA
     Dosage: 25 MILLIGRAM
     Route: 048
     Dates: start: 20070329
  2. CC-5013 [Suspect]
     Dosage: 25 MILLIGRAM
     Route: 048
     Dates: end: 20121204
  3. MELPHALAN [Suspect]
     Indication: PLASMA CELL MYELOMA
     Route: 065
     Dates: start: 20070329
  4. MELPHALAN [Suspect]
     Route: 065
     Dates: start: 20080228
  5. PREDNISONE [Suspect]
     Indication: PLASMA CELL MYELOMA
     Route: 065
     Dates: start: 20070329
  6. PREDNISONE [Suspect]
     Route: 065
     Dates: start: 20080228
  7. AMARYL [Concomitant]
     Indication: DIABETES MELLITUS
     Route: 048
     Dates: start: 20070216
  8. DUROGESIC [Concomitant]
     Indication: BONE PAIN
     Dosage: 1200 MICROGRAM
     Route: 062
     Dates: start: 20070216
  9. ZOMETA [Concomitant]
     Indication: OSTEOPOROSIS
     Route: 041
     Dates: start: 20070323
  10. PANTOLOC [Concomitant]
     Indication: PROPHYLAXIS AGAINST GASTROINTESTINAL ULCER
     Route: 048
     Dates: start: 20070503
  11. ERYTHROPOIETIN [Concomitant]
     Indication: ANAEMIA
     Route: 058
     Dates: start: 20070531
  12. SERECTIL [Concomitant]
     Indication: PAIN
     Route: 048
     Dates: start: 20101006
  13. MYOLASTAN [Concomitant]
     Indication: PAIN
     Route: 048
     Dates: start: 20101006
  14. CIPROFLOXACIN [Concomitant]
     Indication: URINARY TRACT INFECTION
     Route: 048
     Dates: start: 20121005, end: 20121010
  15. THROMBO ASS [Concomitant]
     Indication: THROMBOSIS PROPHYLAXIS
     Route: 065
     Dates: start: 20070531

REACTIONS (2)
  - Rectal cancer metastatic [Not Recovered/Not Resolved]
  - Femoral neck fracture [Recovered/Resolved]
